FAERS Safety Report 24987474 (Version 1)
Quarter: 2025Q1

REPORT INFORMATION
  Report Type: Spontaneous
  Country: DK (occurrence: DK)
  Receive Date: 20250219
  Receipt Date: 20250219
  Transmission Date: 20250408
  Serious: Yes (Other)
  Sender: SANOFI AVENTIS
  Company Number: None

PATIENT
  Age: 42 Year
  Sex: Male
  Weight: 98 kg

DRUGS (2)
  1. AUBAGIO [Suspect]
     Active Substance: TERIFLUNOMIDE
     Indication: Multiple sclerosis
     Dosage: 14 MG, QD
     Route: 048
     Dates: start: 20240815
  2. MODAFINIL [Concomitant]
     Active Substance: MODAFINIL
     Indication: Fatigue
     Dates: start: 20240610

REACTIONS (3)
  - Bone sequestrum [Recovering/Resolving]
  - Pain [Recovering/Resolving]
  - Impaired healing [Recovering/Resolving]

NARRATIVE: CASE EVENT DATE: 20240101
